FAERS Safety Report 5337830-8 (Version None)
Quarter: 2007Q2

REPORT INFORMATION
  Report Type: 
  Country: None (occurrence: None)
  Receive Date: 20070308
  Receipt Date: 20070102
  Transmission Date: 20071010
  Serious: No
  Sender: FDA-Public Use
  Company Number: 2007-BP-00030BP

PATIENT
  Sex: Male

DRUGS (12)
  1. SPIRIVA [Suspect]
     Indication: CHRONIC OBSTRUCTIVE PULMONARY DISEASE
     Dosage: SEE TEXT (18 MCG, 3-4 PUFFS QD), IH
     Route: 055
     Dates: start: 20061201
  2. COMBIVENT [Concomitant]
  3. ADVAIR (SERETIDE) [Concomitant]
  4. SINGULAIR [Concomitant]
  5. COZAAR [Concomitant]
  6. ZOCOR [Concomitant]
  7. COUMADIN [Concomitant]
  8. FLONASE [Concomitant]
  9. DIGOXIN [Concomitant]
  10. VERAPAMIL [Concomitant]
  11. EFFEXOR [Concomitant]
  12. ADVODART (DUTASTERIDE) [Concomitant]

REACTIONS (2)
  - ARTHRALGIA [None]
  - PNEUMONIA [None]
